FAERS Safety Report 5175853-2 (Version None)
Quarter: 2006Q4

REPORT INFORMATION
  Report Type: 
  Country: None (occurrence: None)
  Receive Date: 20061215
  Receipt Date: 20060927
  Transmission Date: 20070319
  Serious: Yes (Hospitalization)
  Sender: FDA-Public Use
  Company Number: FR-ROCHE-465056

PATIENT
  Age: 78 Year
  Sex: Female
  Weight: 60 kg

DRUGS (2)
  1. XELODA [Suspect]
     Indication: GASTROINTESTINAL CARCINOMA
     Dosage: DOSAGE REPORTED AS 1500 TWICE.
     Route: 048
     Dates: start: 20060715, end: 20060915
  2. MODOPAR [Concomitant]
     Dates: start: 19900615

REACTIONS (3)
  - NECROSIS [None]
  - PERIPHERAL ISCHAEMIA [None]
  - TOE AMPUTATION [None]
